FAERS Safety Report 25106786 (Version 1)
Quarter: 2025Q1

REPORT INFORMATION
  Report Type: Spontaneous
  Country: AU (occurrence: AU)
  Receive Date: 20250321
  Receipt Date: 20250321
  Transmission Date: 20250409
  Serious: Yes (Death, Life-Threatening, Other)
  Sender: NOVARTIS
  Company Number: AU-002147023-NVSC2025AU047338

PATIENT
  Age: 65 Year
  Sex: Male

DRUGS (1)
  1. LUTETIUM LU-177 VIPIVOTIDE TETRAXETAN [Suspect]
     Active Substance: LUTETIUM LU-177 VIPIVOTIDE TETRAXETAN
     Indication: Hormone-refractory prostate cancer
     Route: 065

REACTIONS (7)
  - Death [Fatal]
  - Thrombocytopenia [Unknown]
  - Neutropenia [Unknown]
  - Anaemia [Unknown]
  - Acute promyelocytic leukaemia [Unknown]
  - Second primary malignancy [Unknown]
  - Haematotoxicity [Unknown]
